FAERS Safety Report 4870928-7 (Version None)
Quarter: 2005Q4

REPORT INFORMATION
  Report Type: 
  Country: None (occurrence: None)
  Receive Date: 20051229
  Receipt Date: 20051215
  Transmission Date: 20060501
  Serious: Yes (Hospitalization)
  Sender: FDA-Public Use
  Company Number: 2005169941

PATIENT
  Age: 57 Year
  Sex: Male

DRUGS (3)
  1. DEPO-MEDROL [Suspect]
     Indication: LYMPHOMA
     Dosage: 40 MG (1 IN 1 D), INTRATHECAL
     Route: 037
  2. CYTARABINE [Suspect]
     Indication: LYMPHOMA
     Dosage: 40 MG (1 IN 1 D), INTRATHECAL
     Route: 039
  3. METHOTREXATE [Suspect]
     Indication: LYMPHOMA
     Dosage: 15 MG (1 IN 1 D), INTRATHECAL
     Route: 037

REACTIONS (12)
  - BACK PAIN [None]
  - BLADDER DISTENSION [None]
  - FAECAL INCONTINENCE [None]
  - FLATULENCE [None]
  - HYPOAESTHESIA [None]
  - NERVOUS SYSTEM DISORDER [None]
  - PARAESTHESIA [None]
  - PROCTALGIA [None]
  - RADICULAR PAIN [None]
  - SENSORY DISTURBANCE [None]
  - SEXUAL DYSFUNCTION [None]
  - URINARY INCONTINENCE [None]
